FAERS Safety Report 6712630-2 (Version None)
Quarter: 2010Q2

REPORT INFORMATION
  Report Type: 
  Country: None (occurrence: None)
  Receive Date: 20100506
  Receipt Date: 20100426
  Transmission Date: 20101027
  Serious: No
  Sender: FDA-Public Use
  Company Number: US-JNJFOC-20100407133

PATIENT
  Sex: Female
  Weight: 76.2 kg

DRUGS (5)
  1. FENTANYL CITRATE [Suspect]
     Indication: PAIN IN EXTREMITY
     Route: 062
  2. FENTANYL CITRATE [Suspect]
     Indication: BACK PAIN
     Route: 062
  3. TOPROL-XL [Concomitant]
     Indication: HYPERTENSION
     Route: 048
  4. ASPIRIN [Concomitant]
     Indication: PROPHYLAXIS
     Route: 048
  5. RAMIPRIL [Concomitant]
     Indication: HYPERTENSION
     Route: 048

REACTIONS (3)
  - HICCUPS [None]
  - NAUSEA [None]
  - TREATMENT NONCOMPLIANCE [None]
